FAERS Safety Report 13075111 (Version 1)
Quarter: 2016Q4

REPORT INFORMATION
  Report Type: Spontaneous
  Country: GB (occurrence: GB)
  Receive Date: 20161230
  Receipt Date: 20161230
  Transmission Date: 20170207
  Serious: Yes (Other)
  Sender: FDA-Public Use
  Company Number: GB-AUROBINDO-AUR-APL-2016-15830

PATIENT
  Age: 69 Year
  Sex: Female
  Weight: 112.3 kg

DRUGS (7)
  1. BISOPROLOL [Suspect]
     Active Substance: BISOPROLOL
     Dosage: 2.5 MG, UNK
     Route: 048
     Dates: start: 201602
  2. MONTELUKAST [Concomitant]
     Active Substance: MONTELUKAST SODIUM
     Indication: PRODUCT USED FOR UNKNOWN INDICATION
     Route: 065
  3. BENDROFLUMETHIAZIDE [Concomitant]
     Active Substance: BENDROFLUMETHIAZIDE
     Indication: PRODUCT USED FOR UNKNOWN INDICATION
     Route: 065
  4. BISOPROLOL [Suspect]
     Active Substance: BISOPROLOL
     Dosage: 1.25 MG, UNK
     Route: 048
     Dates: start: 2008, end: 201602
  5. SALBUTAMOL SULFATE [Concomitant]
     Active Substance: ALBUTEROL SULFATE
     Indication: PRODUCT USED FOR UNKNOWN INDICATION
     Route: 065
  6. WARFARIN [Concomitant]
     Active Substance: WARFARIN
     Indication: PRODUCT USED FOR UNKNOWN INDICATION
     Route: 065
  7. BISOPROLOL [Suspect]
     Active Substance: BISOPROLOL
     Indication: ATRIAL FIBRILLATION
     Dosage: 2.5 MG, UNK
     Route: 048
     Dates: start: 2007, end: 2008

REACTIONS (4)
  - Memory impairment [Unknown]
  - Disturbance in attention [Unknown]
  - Dissociative disorder [Unknown]
  - Speech disorder [Unknown]

NARRATIVE: CASE EVENT DATE: 201602
